FAERS Safety Report 24158702 (Version 2)
Quarter: 2024Q3

REPORT INFORMATION
  Report Type: Report from Study
  Country: US (occurrence: US)
  Receive Date: 20240731
  Receipt Date: 20240828
  Transmission Date: 20241017
  Serious: Yes (Hospitalization, Other)
  Sender: ABBVIE
  Company Number: US-ABBVIE-5856970

PATIENT
  Age: 69 Year
  Sex: Female

DRUGS (1)
  1. CREON [Suspect]
     Active Substance: PANCRELIPASE AMYLASE\PANCRELIPASE LIPASE\PANCRELIPASE PROTEASE
     Indication: Product used for unknown indication
     Route: 048
     Dates: start: 20200726

REACTIONS (5)
  - Pancreatitis acute [Unknown]
  - Intestinal stent insertion [Unknown]
  - Intestinal stent insertion [Unknown]
  - Duodenectomy [Unknown]
  - Underweight [Recovering/Resolving]

NARRATIVE: CASE EVENT DATE: 20240501
